FAERS Safety Report 6480018-8 (Version None)
Quarter: 2009Q4

REPORT INFORMATION
  Report Type: 
  Country: None (occurrence: None)
  Receive Date: 20091208
  Receipt Date: 20091202
  Transmission Date: 20100525
  Serious: Yes (Hospitalization)
  Sender: FDA-Public Use
  Company Number: IN-ROCHE-672635

PATIENT
  Sex: Male
  Weight: 63 kg

DRUGS (6)
  1. CAPECITABINE [Suspect]
     Route: 065
  2. AVASTIN [Suspect]
     Route: 065
  3. OXALIPLATIN [Suspect]
     Route: 065
  4. EMEND [Concomitant]
     Indication: PROPHYLAXIS
     Dosage: DRUG NAME REPORTED AS EMPROV-APREPITANT
     Route: 048
     Dates: start: 20091022, end: 20091024
  5. GELUSIL [Concomitant]
     Indication: PROPHYLAXIS
     Route: 048
     Dates: start: 20091022, end: 20091024
  6. RANTAC [Concomitant]
     Indication: PROPHYLAXIS
     Route: 048
     Dates: start: 20091022, end: 20091024

REACTIONS (2)
  - SKIN NECROSIS [None]
  - SUBCUTANEOUS ABSCESS [None]
